FAERS Safety Report 19092964 (Version 1)
Quarter: 2021Q2

REPORT INFORMATION
  Report Type: Spontaneous
  Country: US (occurrence: US)
  Receive Date: 20210403
  Receipt Date: 20210403
  Transmission Date: 20210717
  Serious: Yes (Life-Threatening, Hospitalization, Disabling)
  Sender: FDA-Public Use
  Company Number: None

PATIENT
  Age: 26 Year
  Sex: Female

DRUGS (1)
  1. OXCARBAZEPINE. [Suspect]
     Active Substance: OXCARBAZEPINE
     Indication: BIPOLAR DISORDER
     Dates: start: 20200113, end: 20200116

REACTIONS (6)
  - Cerebral haemorrhage [None]
  - Hyperthermia [None]
  - Contusion [None]
  - Insomnia [None]
  - Seizure [None]
  - Cerebrovascular accident [None]
